FAERS Safety Report 8362512-8 (Version None)
Quarter: 2012Q2

REPORT INFORMATION
  Report Type: 
  Country: None (occurrence: None)
  Receive Date: 20120516
  Receipt Date: 20120509
  Transmission Date: 20120825
  Serious: Yes (Death, Hospitalization)
  Sender: FDA-Public Use
  Company Number: US-CELGENEUS-163-21880-12050337

PATIENT
  Sex: Male

DRUGS (13)
  1. REVLIMID [Suspect]
     Indication: MULTIPLE MYELOMA
     Dosage: 25 MILLIGRAM
     Route: 048
     Dates: start: 20120217, end: 20120427
  2. MELPHALAN HYDROCHLORIDE [Concomitant]
     Route: 065
  3. DOCUSATE SODIUM [Concomitant]
     Route: 065
  4. SIMVASTATIN [Concomitant]
     Route: 065
  5. DEXAMETHASONE [Concomitant]
     Route: 065
  6. WARFARIN SODIUM [Concomitant]
     Route: 065
  7. NAPROXEN [Concomitant]
     Route: 065
  8. ONDANSETRON [Concomitant]
     Route: 065
  9. MORPHINE [Concomitant]
     Route: 065
  10. MEGESTROL ACETATE [Concomitant]
     Route: 065
  11. PRILOSEC [Concomitant]
     Route: 065
  12. AMITRIPTYLINE HCL [Concomitant]
     Route: 065
  13. M.V.I. [Concomitant]
     Route: 065

REACTIONS (4)
  - PANCYTOPENIA [None]
  - RESPIRATORY FAILURE [None]
  - PNEUMONIA STREPTOCOCCAL [None]
  - DEATH [None]
